FAERS Safety Report 10056693 (Version 1)
Quarter: 2014Q2

REPORT INFORMATION
  Report Type: Spontaneous
  Country: US (occurrence: None)
  Receive Date: 20140401
  Receipt Date: 20140401
  Transmission Date: 20141212
  Serious: Yes (Other)
  Sender: FDA-Public Use
  Company Number: FK201400975

PATIENT
  Age: 33 Year
  Sex: Female

DRUGS (5)
  1. BUPIVACAINE [Suspect]
     Indication: EPIDURAL ANALGESIA
     Route: 008
  2. FENTANYL [Suspect]
     Indication: EPIDURAL ANALGESIA
     Route: 008
  3. LACTATES RINGER (FLEBABAG RING LACT) [Concomitant]
  4. PHENYLEPHRINE (PHENYLEPRINE) [Concomitant]
  5. EPHEDRINE (EPHEDRINE) [Concomitant]

REACTIONS (4)
  - Conversion disorder [None]
  - Drug administration error [None]
  - Maternal exposure during delivery [None]
  - Hypotension [None]
